FAERS Safety Report 19888888 (Version 1)
Quarter: 2021Q3

REPORT INFORMATION
  Report Type: Other
  Country: US (occurrence: US)
  Receive Date: 20210927
  Receipt Date: 20210927
  Transmission Date: 20211014
  Serious: Yes (Other)
  Sender: FDA-Public Use
  Company Number: US-KNIGHT THERAPEUTICS (USA) INC.-2118854

PATIENT
  Age: 26 Year
  Sex: Female

DRUGS (3)
  1. DIFLUPREDNATE 0.05% [Concomitant]
  2. PREDNISOLONE ACETATE 1.0% [Concomitant]
  3. IMPAVIDO [Suspect]
     Active Substance: MILTEFOSINE
     Indication: ACANTHAMOEBA KERATITIS

REACTIONS (2)
  - Condition aggravated [Recovered/Resolved with Sequelae]
  - Off label use [Recovered/Resolved with Sequelae]
